FAERS Safety Report 20799521 (Version 1)
Quarter: 2022Q2

REPORT INFORMATION
  Report Type: Spontaneous
  Country: US (occurrence: US)
  Receive Date: 20220509
  Receipt Date: 20220509
  Transmission Date: 20220721
  Serious: No
  Sender: FDA-Public Use
  Company Number: US-BRISTOL-MYERS SQUIBB COMPANY-2022-032796

PATIENT
  Age: 65 Year
  Sex: Male

DRUGS (1)
  1. POMALYST [Suspect]
     Active Substance: POMALIDOMIDE
     Indication: Plasma cell myeloma
     Dosage: 1CAPSULE BY MOUTH AT THESAME TIME DAILYFOR 21 DAYS THEN OFF FOR 7 DAYS.TAKE WHOLE ON EMPTY STOMACH.
     Route: 048

REACTIONS (3)
  - Pruritus [Unknown]
  - Vision blurred [Unknown]
  - Fatigue [Unknown]
